FAERS Safety Report 12004955 (Version 4)
Quarter: 2017Q4

REPORT INFORMATION
  Report Type: Spontaneous
  Country: BR (occurrence: BR)
  Receive Date: 20160204
  Receipt Date: 20171227
  Transmission Date: 20180320
  Serious: Yes (Other)
  Sender: FDA-Public Use
  Company Number: BR-JNJFOC-20160124843

PATIENT
  Age: 72 Year
  Sex: Female
  Weight: 44 kg

DRUGS (6)
  1. EUTIROX [Concomitant]
     Active Substance: LEVOTHYROXINE SODIUM
     Route: 065
  2. SIMPONI [Suspect]
     Active Substance: GOLIMUMAB
     Indication: RHEUMATOID ARTHRITIS
     Route: 058
     Dates: start: 20150915
  3. EBASTEL [Concomitant]
     Active Substance: EBASTINE
     Route: 065
  4. RISEDRONATE [Concomitant]
     Active Substance: RISEDRONATE SODIUM
     Route: 065
  5. NIMODIPINE. [Concomitant]
     Active Substance: NIMODIPINE
     Route: 065
  6. AZULFIDINE [Concomitant]
     Active Substance: SULFASALAZINE
     Route: 065

REACTIONS (14)
  - Drug ineffective [Unknown]
  - Allergic cough [Unknown]
  - Alopecia [Unknown]
  - Visual impairment [Unknown]
  - Hypothyroidism [Unknown]
  - Dizziness [Unknown]
  - Finger amputation [Unknown]
  - Osteoarthritis [Unknown]
  - Drug administration error [Unknown]
  - Weight decreased [Unknown]
  - Osteoporosis [Unknown]
  - Influenza [Unknown]
  - Off label use [Unknown]
  - High density lipoprotein increased [Unknown]

NARRATIVE: CASE EVENT DATE: 201710
